FAERS Safety Report 5382467-8 (Version None)
Quarter: 2007Q3

REPORT INFORMATION
  Report Type: 
  Country: None (occurrence: None)
  Receive Date: 20070705
  Receipt Date: 20060615
  Transmission Date: 20080115
  Serious: Yes (Disabling)
  Sender: FDA-Public Use
  Company Number: WAES 0606USA02874

PATIENT
  Sex: Female
  Weight: 62.5964 kg

DRUGS (1)
  1. HYZAAR [Suspect]
     Indication: HYPERTENSION
     Dosage: 50-12.5 MG DAILY; PO
     Route: 048
     Dates: start: 20060531, end: 20060608

REACTIONS (1)
  - DEPRESSION [None]
